FAERS Safety Report 4648377-6 (Version None)
Quarter: 2005Q2

REPORT INFORMATION
  Report Type: 
  Country: None (occurrence: None)
  Receive Date: 20050429
  Receipt Date: 20041214
  Transmission Date: 20051028
  Serious: Yes (Hospitalization)
  Sender: FDA-Public Use
  Company Number: 200413662EU

PATIENT
  Sex: Male
  Weight: 58 kg

DRUGS (2)
  1. TAXOTERE [Suspect]
     Indication: NON-SMALL CELL LUNG CANCER
     Route: 042
     Dates: start: 20030128, end: 20030331
  2. MEDROL [Concomitant]
     Indication: PROPHYLAXIS
     Route: 048
     Dates: start: 20030218, end: 20030318

REACTIONS (7)
  - DISEASE PROGRESSION [None]
  - METASTASES TO SPINE [None]
  - NEUROPATHY [None]
  - NEUTROPHIL COUNT DECREASED [None]
  - PAIN IN EXTREMITY [None]
  - URINARY RETENTION [None]
  - WHITE BLOOD CELL COUNT DECREASED [None]
